FAERS Safety Report 9285411 (Version 3)
Quarter: 2013Q2

REPORT INFORMATION
  Report Type: Spontaneous
  Country: US (occurrence: US)
  Receive Date: 20130513
  Receipt Date: 20130516
  Transmission Date: 20140414
  Serious: No
  Sender: FDA-Public Use
  Company Number: US-PFIZER INC-2013146872

PATIENT
  Age: 74 Year
  Sex: Female
  Weight: 54.88 kg

DRUGS (2)
  1. LYRICA [Suspect]
     Indication: PAIN
     Dosage: 75 MG, 2X/DAY
     Route: 048
     Dates: start: 2013
  2. ALTACE [Concomitant]
     Dosage: 2.5 MG, 1X/DAY

REACTIONS (1)
  - Drug ineffective [Unknown]
